FAERS Safety Report 18889934 (Version 2)
Quarter: 2021Q1

REPORT INFORMATION
  Report Type: Report from Study
  Country: US (occurrence: US)
  Receive Date: 20210213
  Receipt Date: 20210216
  Transmission Date: 20210420
  Serious: Yes (Death, Hospitalization)
  Sender: FDA-Public Use
  Company Number: NVSC2021US034427

PATIENT
  Age: 40 Year
  Sex: Female
  Weight: 49.1 kg

DRUGS (1)
  1. KYMRIAH [Suspect]
     Active Substance: TISAGENLECLEUCEL
     Indication: DIFFUSE LARGE B-CELL LYMPHOMA
     Dosage: UNK (2.7E8 CAR+T CELLS)
     Route: 065
     Dates: start: 20201113, end: 20201113

REACTIONS (4)
  - Diffuse large B-cell lymphoma [Fatal]
  - Eyelid ptosis [Unknown]
  - Malignant neoplasm progression [Fatal]
  - Diplopia [Unknown]

NARRATIVE: CASE EVENT DATE: 20201218
